FAERS Safety Report 13801692 (Version 1)
Quarter: 2017Q3

REPORT INFORMATION
  Report Type: Spontaneous
  Country: ID (occurrence: ID)
  Receive Date: 20170727
  Receipt Date: 20170727
  Transmission Date: 20171127
  Serious: Yes (Death, Other)
  Sender: FDA-Public Use
  Company Number: PHHY2017ID109736

PATIENT
  Age: 34 Year
  Sex: Male

DRUGS (3)
  1. STREPTOMYCIN [Suspect]
     Active Substance: STREPTOMYCIN\STREPTOMYCIN SULFATE
     Indication: PULMONARY TUBERCULOSIS
     Dosage: 125 MG, DAY 1
     Route: 065
  2. STREPTOMYCIN [Suspect]
     Active Substance: STREPTOMYCIN\STREPTOMYCIN SULFATE
     Dosage: 500 MG, DAY 2
     Route: 065
  3. RIFAMPICIN+ISONIAZID+PYRAZINAMIDE+ETHAMBUTOL [Suspect]
     Active Substance: ETHAMBUTOL HYDROCHLORIDE\ISONIAZID\PYRAZINAMIDE\RIFAMPIN
     Indication: PULMONARY TUBERCULOSIS
     Route: 048

REACTIONS (7)
  - Hypoxia [Fatal]
  - Dermatitis bullous [Unknown]
  - Blister [Unknown]
  - Skin hyperpigmentation [Unknown]
  - Scab [Unknown]
  - Skin erosion [Unknown]
  - General physical health deterioration [Unknown]
